FAERS Safety Report 8230036-4 (Version None)
Quarter: 2012Q1

REPORT INFORMATION
  Report Type: 
  Country: None (occurrence: None)
  Receive Date: 20120307
  Receipt Date: 20100929
  Transmission Date: 20120608
  Serious: No
  Sender: FDA-Public Use
  Company Number: PHEH2010US03837

PATIENT
  Age: 66 Year
  Sex: Male

DRUGS (1)
  1. AFINITOR [Suspect]
     Dosage: 10 MG, QD, ORAL
     Route: 048
     Dates: start: 20100701, end: 20100801

REACTIONS (6)
  - JOINT SWELLING [None]
  - THROAT IRRITATION [None]
  - NAUSEA [None]
  - DIARRHOEA [None]
  - RASH [None]
  - OEDEMA PERIPHERAL [None]
